FAERS Safety Report 14498262 (Version 2)
Quarter: 2018Q1

REPORT INFORMATION
  Report Type: Spontaneous
  Country: JP (occurrence: JP)
  Receive Date: 20180207
  Receipt Date: 20180227
  Transmission Date: 20180509
  Serious: Yes (Other)
  Sender: FDA-Public Use
  Company Number: JP-BRISTOL-MYERS SQUIBB COMPANY-BMS-2018-008525

PATIENT
  Age: 65 Year
  Sex: Female

DRUGS (4)
  1. KENACORT-A [Suspect]
     Active Substance: TRIAMCINOLONE
     Indication: CYSTOID MACULAR OEDEMA
     Route: 065
  2. BEVACIZUMAB. [Suspect]
     Active Substance: BEVACIZUMAB
     Indication: CYSTOID MACULAR OEDEMA
     Route: 065
  3. KENACORT-A [Suspect]
     Active Substance: TRIAMCINOLONE
     Indication: RETINAL VEIN OCCLUSION
     Dosage: UNK
     Route: 050
  4. BEVACIZUMAB. [Suspect]
     Active Substance: BEVACIZUMAB
     Indication: RETINAL VEIN OCCLUSION
     Route: 050

REACTIONS (3)
  - Retinoschisis [Unknown]
  - Product use issue [Unknown]
  - Product use in unapproved indication [Unknown]
